FAERS Safety Report 4397580-1 (Version None)
Quarter: 2004Q3

REPORT INFORMATION
  Report Type: 
  Country: None (occurrence: None)
  Receive Date: 20040709
  Receipt Date: 20040702
  Transmission Date: 20050211
  Serious: Yes (Life-Threatening)
  Sender: FDA-Public Use
  Company Number: 2004SE03497

PATIENT
  Age: 75 Year
  Sex: Female
  Weight: 85 kg

DRUGS (7)
  1. PARAPRES [Suspect]
     Indication: ESSENTIAL HYPERTENSION
     Dosage: 8 MG QD PO
     Route: 048
     Dates: start: 20040120, end: 20040217
  2. PARAPRES [Suspect]
     Indication: ESSENTIAL HYPERTENSION
     Dosage: 16 MG QD PO
     Route: 048
     Dates: start: 20040217, end: 20040224
  3. INSULATARD NPH HUMAN [Concomitant]
  4. LISINOPRIL [Concomitant]
  5. FUROSEMIDE [Concomitant]
  6. ACARBOSE [Concomitant]
  7. LOVASTATIN [Concomitant]

REACTIONS (2)
  - CONDITION AGGRAVATED [None]
  - HYPERTENSION [None]
